FAERS Safety Report 17571348 (Version 1)
Quarter: 2020Q1

REPORT INFORMATION
  Report Type: Spontaneous
  Country: CN (occurrence: CN)
  Receive Date: 20200323
  Receipt Date: 20200323
  Transmission Date: 20200409
  Serious: Yes (Other)
  Sender: FDA-Public Use
  Company Number: CN-PFIZER INC-2020120960

PATIENT
  Age: 89 Year
  Sex: Female

DRUGS (5)
  1. MEPEM [MEROPENEM] [Suspect]
     Active Substance: MEROPENEM
     Indication: PNEUMONIA
     Dosage: 0.500000 G, 3X/DAY
     Route: 041
     Dates: start: 20191231, end: 20200119
  2. VFEND [Suspect]
     Active Substance: VORICONAZOLE
     Indication: PNEUMONIA
     Dosage: 200.000 MG, 2X/DAY
     Route: 041
     Dates: start: 20191231, end: 20200119
  3. LINEZOLID. [Concomitant]
     Active Substance: LINEZOLID
     Indication: PNEUMONIA
     Dosage: 0.600 G, 2X/DAY
     Route: 041
     Dates: start: 20200109, end: 20200202
  4. ERIL [FASUDIL HYDROCHLORIDE] [Concomitant]
     Indication: CARDIOVASCULAR DISORDER
     Dosage: 30.000 MG, 2X/DAY
     Route: 041
     Dates: start: 20200109, end: 20200206
  5. CARNITENE [LEVOCARNITINE] [Concomitant]
     Indication: CARDIAC DISORDER
     Dosage: 2.000 G, 1X/DAY
     Route: 041
     Dates: start: 20200109, end: 20200206

REACTIONS (2)
  - Epilepsy [Recovering/Resolving]
  - Drug ineffective [Unknown]

NARRATIVE: CASE EVENT DATE: 20200108
